FAERS Safety Report 24805338 (Version 1)
Quarter: 2025Q1

REPORT INFORMATION
  Report Type: Spontaneous
  Country: US (occurrence: US)
  Receive Date: 20250103
  Receipt Date: 20250103
  Transmission Date: 20250408
  Serious: No
  Sender: GE HEALTHCARE
  Company Number: US-GE HEALTHCARE-2024CSU013214

PATIENT
  Age: 59 Year
  Sex: Male

DRUGS (2)
  1. DATSCAN [Suspect]
     Active Substance: IODINE\IOFLUPANE I-123
     Indication: Diagnostic procedure
     Route: 065
     Dates: start: 20241106, end: 20241106
  2. IOSAT [Concomitant]
     Active Substance: POTASSIUM IODIDE
     Dosage: 130 MG, SINGLE
     Route: 065
     Dates: start: 20241106, end: 20241106

REACTIONS (2)
  - Drug ineffective [Recovered/Resolved]
  - No adverse event [Recovered/Resolved]

NARRATIVE: CASE EVENT DATE: 20241106
